FAERS Safety Report 8987515 (Version 1)
Quarter: 2012Q4

REPORT INFORMATION
  Report Type: 
  Country: FR (occurrence: FR)
  Receive Date: 20121227
  Receipt Date: 20121227
  Transmission Date: 20130627
  Serious: Yes (Other)
  Sender: FDA-Public Use
  Company Number: FR-ABBOTT-12P-056-1026516-00

PATIENT
  Age: 24 Year
  Sex: Male

DRUGS (1)
  1. DEPAKINE [Suspect]
     Indication: EPILEPSY
     Dosage: 500 milligrams; Daily
     Route: 048
     Dates: start: 2012

REACTIONS (1)
  - Grand mal convulsion [Recovered/Resolved]
